FAERS Safety Report 19247052 (Version 1)
Quarter: 2021Q2

REPORT INFORMATION
  Report Type: Spontaneous
  Country: IN (occurrence: IN)
  Receive Date: 20210512
  Receipt Date: 20210512
  Transmission Date: 20210717
  Serious: Yes (Other)
  Sender: FDA-Public Use
  Company Number: IN-SUN PHARMACEUTICAL INDUSTRIES LTD-2021R1-295798

PATIENT
  Age: 28 Year
  Sex: Male

DRUGS (4)
  1. OLANZAPINE. [Suspect]
     Active Substance: OLANZAPINE
     Indication: FEAR
  2. OLANZAPINE. [Suspect]
     Active Substance: OLANZAPINE
     Indication: DEPRESSION
     Dosage: 5 MILLIGRAM
     Route: 065
  3. FLUPENTHIXOL [Suspect]
     Active Substance: FLUPENTIXOL
     Indication: DEPRESSION
  4. FLUPENTHIXOL [Suspect]
     Active Substance: FLUPENTIXOL
     Indication: FEAR
     Dosage: 20 MILLIGRAM
     Route: 065

REACTIONS (3)
  - Parkinsonism [Recovered/Resolved]
  - Encephalitis mumps [Recovered/Resolved]
  - Akathisia [Recovering/Resolving]
